FAERS Safety Report 9993602 (Version 3)
Quarter: 2014Q3

REPORT INFORMATION
  Report Type: Spontaneous
  Country: IE (occurrence: IE)
  Receive Date: 20140310
  Receipt Date: 20140711
  Transmission Date: 20150326
  Serious: Yes (Life-Threatening, Hospitalization, Other)
  Sender: FDA-Public Use
  Company Number: PHFR2012IE004290

PATIENT
  Age: 72 Year
  Sex: Female
  Weight: 53 kg

DRUGS (10)
  1. CLONAZEPAM. [Suspect]
     Active Substance: CLONAZEPAM
     Dosage: 1 MG, DAILY
     Route: 048
  2. CLOZARIL [Suspect]
     Active Substance: CLOZAPINE
     Indication: SCHIZOPHRENIA
     Dosage: UNK
     Route: 048
     Dates: start: 20080215
  3. CLOZARIL [Suspect]
     Active Substance: CLOZAPINE
     Dosage: 300 MG, DAILY
     Route: 048
  4. LANSOPRAZOLE. [Concomitant]
     Active Substance: LANSOPRAZOLE
     Dosage: UNK
  5. SERTRALINE [Suspect]
     Active Substance: SERTRALINE HYDROCHLORIDE
     Dosage: UNK
  6. SERETIDE [Concomitant]
     Active Substance: FLUTICASONE FUROATE\SALMETEROL XINAFOATE
     Dosage: UNK
  7. LAMOTRIGINE. [Suspect]
     Active Substance: LAMOTRIGINE
     Dosage: UNK
  8. TIOTROPIUM [Concomitant]
     Active Substance: TIOTROPIUM
     Dosage: UNK
  9. AMISULPRIDE [Suspect]
     Active Substance: AMISULPRIDE
     Dosage: UNK
  10. LACTULOSE. [Concomitant]
     Active Substance: LACTULOSE
     Dosage: UNK

REACTIONS (10)
  - Chronic obstructive pulmonary disease [Recovered/Resolved]
  - Sedation [Recovered/Resolved]
  - Neutrophil count increased [Unknown]
  - Differential white blood cell count abnormal [Not Recovered/Not Resolved]
  - Oxygen saturation decreased [Unknown]
  - Aspiration [Unknown]
  - White blood cell count increased [Unknown]
  - Gastritis [Recovered/Resolved]
  - Mental disorder [Unknown]
  - Depressed level of consciousness [Unknown]

NARRATIVE: CASE EVENT DATE: 20140306
